FAERS Safety Report 8775879 (Version 1)
Quarter: 2012Q4

REPORT INFORMATION
  Report Type: 
  Country: None (occurrence: None)
  Receive Date: 20120910
  Receipt Date: 20120910
  Transmission Date: 20130627
  Serious: Yes (Other)
  Sender: FDA-Public Use
  Company Number: RS-ROCHE-1009758

PATIENT

DRUGS (3)
  1. XELODA [Suspect]
     Indication: RECTAL CANCER
     Route: 048
  2. MITOMYCIN C [Suspect]
     Indication: RECTAL CANCER
     Route: 065
  3. GLUCOSE 5% [Concomitant]
     Route: 042

REACTIONS (5)
  - Diarrhoea [Unknown]
  - Venous thrombosis [Unknown]
  - Neutropenia [Unknown]
  - Granulocytopenia [Unknown]
  - Radiation skin injury [Unknown]
